FAERS Safety Report 17264579 (Version 1)
Quarter: 2020Q1

REPORT INFORMATION
  Report Type: Spontaneous
  Country: US (occurrence: US)
  Receive Date: 20200113
  Receipt Date: 20200113
  Transmission Date: 20200409
  Serious: Yes (Other)
  Sender: FDA-Public Use
  Company Number: US-SA-2020SA006305

PATIENT
  Age: 52 Year
  Sex: Female
  Weight: 54.42 kg

DRUGS (6)
  1. IMITREX [Concomitant]
     Active Substance: SUMATRIPTAN SUCCINATE
     Dosage: UNK
     Dates: start: 2005, end: 2015
  2. TAXOTERE [Suspect]
     Active Substance: DOCETAXEL
     Indication: INVASIVE DUCTAL BREAST CARCINOMA
     Dosage: 115 MG, Q3W
     Route: 042
     Dates: start: 20090730, end: 20090730
  3. PARAPLATIN [Concomitant]
     Active Substance: CARBOPLATIN
     Indication: INVASIVE DUCTAL BREAST CARCINOMA
  4. PREVACID [Concomitant]
     Active Substance: LANSOPRAZOLE
     Dosage: UNK
     Dates: start: 2002
  5. TRASTUZUMAB. [Concomitant]
     Active Substance: TRASTUZUMAB
     Indication: INVASIVE DUCTAL BREAST CARCINOMA
  6. TAXOTERE [Suspect]
     Active Substance: DOCETAXEL
     Indication: METASTASES TO LIVER
     Dosage: 115 MG, Q3W
     Route: 042
     Dates: start: 20091112, end: 20091112

REACTIONS (2)
  - Psychological trauma [Unknown]
  - Alopecia [Not Recovered/Not Resolved]

NARRATIVE: CASE EVENT DATE: 200908
